FAERS Safety Report 7549430-X (Version None)
Quarter: 2011Q2

REPORT INFORMATION
  Report Type: 
  Country: None (occurrence: None)
  Receive Date: 20110615
  Receipt Date: 20040923
  Transmission Date: 20111010
  Serious: Yes (Hospitalization)
  Sender: FDA-Public Use
  Company Number: PHFR2004IE03544

PATIENT
  Sex: Female

DRUGS (1)
  1. CLOZAPINE [Suspect]
     Indication: SCHIZOPHRENIA
     Dosage: 30 MG, QD
     Route: 048
     Dates: start: 19980323

REACTIONS (3)
  - FULL BLOOD COUNT ABNORMAL [None]
  - POST PROCEDURAL COMPLICATION [None]
  - PLATELET COUNT INCREASED [None]
